FAERS Safety Report 18909530 (Version 3)
Quarter: 2021Q1

REPORT INFORMATION
  Report Type: Spontaneous
  Country: US (occurrence: US)
  Receive Date: 20210218
  Receipt Date: 20210315
  Transmission Date: 20210420
  Serious: Yes (Other)
  Sender: FDA-Public Use
  Company Number: US-GLAXOSMITHKLINE-US2021GSK046590

PATIENT
  Sex: Male

DRUGS (6)
  1. RANITIDINE. [Suspect]
     Active Substance: RANITIDINE
     Indication: DYSPEPSIA
     Dosage: GM051 PRESCRIPTION
     Route: 065
     Dates: start: 201603, end: 201809
  2. RANITIDINE. [Suspect]
     Active Substance: RANITIDINE
     Indication: DYSPEPSIA
     Dosage: 150 UNK, QD
     Route: 065
     Dates: start: 201603, end: 201809
  3. RANITIDINE. [Suspect]
     Active Substance: RANITIDINE
     Dosage: 300 UNK
     Route: 065
     Dates: start: 201603, end: 201809
  4. RANITIDINE. [Suspect]
     Active Substance: RANITIDINE
     Dosage: 300 UNK
     Route: 065
     Dates: start: 201603, end: 201809
  5. RANITIDINE. [Suspect]
     Active Substance: RANITIDINE
     Dosage: 150 UNK, QD
     Route: 065
     Dates: start: 201603, end: 201809
  6. RANITIDINE. [Suspect]
     Active Substance: RANITIDINE
     Dosage: UNK

REACTIONS (1)
  - Gastric cancer [Unknown]
